FAERS Safety Report 6497335-8 (Version None)
Quarter: 2009Q4

REPORT INFORMATION
  Report Type: 
  Country: None (occurrence: None)
  Receive Date: 20091215
  Receipt Date: 20090925
  Transmission Date: 20100525
  Serious: No
  Sender: FDA-Public Use
  Company Number: A0809396A

PATIENT
  Sex: Male

DRUGS (2)
  1. AVODART [Suspect]
     Indication: PROSTATE CANCER
     Route: 048
  2. ACE INHIBITOR [Suspect]
     Indication: DRUG USE FOR UNKNOWN INDICATION
     Route: 065

REACTIONS (1)
  - COUGH [None]
